FAERS Safety Report 7251103-8 (Version None)
Quarter: 2011Q1

REPORT INFORMATION
  Report Type: 
  Country: None (occurrence: None)
  Receive Date: 20110128
  Receipt Date: 20110124
  Transmission Date: 20110831
  Serious: Yes (Death, Hospitalization)
  Sender: FDA-Public Use
  Company Number: FR-ASTRAZENECA-2011SE04150

PATIENT
  Age: 77 Year
  Sex: Male

DRUGS (15)
  1. MOPRAL [Concomitant]
  2. ZOLADEX [Suspect]
     Indication: PROSTATE CANCER
     Route: 058
     Dates: start: 20100101, end: 20100701
  3. OXALIPLATIN [Suspect]
     Indication: BILE DUCT CANCER
     Route: 042
     Dates: start: 20080806, end: 20090121
  4. ACETAMINOPHEN AND TRAMADOL HCL [Concomitant]
     Indication: PAIN
     Route: 048
     Dates: start: 20100217, end: 20101209
  5. LASIX [Concomitant]
  6. LEVOTHYROX [Concomitant]
  7. FOZITEC [Concomitant]
  8. GEMCITABIN [Suspect]
     Indication: BILE DUCT CANCER
     Route: 042
     Dates: start: 20080806, end: 20101109
  9. ZOMETA [Suspect]
     Indication: METASTASES TO BONE
     Dosage: ONE INJECTION PER MONTH
     Route: 042
     Dates: start: 20090617, end: 20101006
  10. CYMBALTA [Concomitant]
     Indication: DEPRESSION
     Route: 048
     Dates: start: 20100217, end: 20101209
  11. KARDEGIC [Concomitant]
  12. ZOPICLONE [Concomitant]
  13. TARCEVA [Suspect]
     Indication: BILE DUCT CANCER
     Dosage: 100 MG PER DAY,  THREE WEEKS OUT OF FOUR
     Route: 048
     Dates: start: 20090204, end: 20101109
  14. TOPALGIC [Concomitant]
     Indication: PAIN
     Route: 048
     Dates: start: 20100217, end: 20101209
  15. LYRICA [Concomitant]
     Indication: PAIN
     Route: 048
     Dates: end: 20101209

REACTIONS (1)
  - LUNG DISORDER [None]
